FAERS Safety Report 17947969 (Version 1)
Quarter: 2020Q2

REPORT INFORMATION
  Report Type: Spontaneous
  Country: US (occurrence: US)
  Receive Date: 20200624
  Receipt Date: 20200624
  Transmission Date: 20200714
  Serious: Yes (Other)
  Sender: FDA-Public Use
  Company Number: None

PATIENT
  Age: 50 Year
  Sex: Female
  Weight: 92.08 kg

DRUGS (2)
  1. WELLBUTRIN [Concomitant]
     Active Substance: BUPROPION HYDROCHLORIDE
  2. ATOMOXETINE 80MG [Suspect]
     Active Substance: ATOMOXETINE
     Indication: ATTENTION DEFICIT HYPERACTIVITY DISORDER
     Dosage: ?          QUANTITY:1 DF DOSAGE FORM;?
     Route: 048
     Dates: start: 20200525, end: 20200610

REACTIONS (7)
  - Dry mouth [None]
  - Memory impairment [None]
  - Decreased appetite [None]
  - Tongue discomfort [None]
  - Hypoaesthesia oral [None]
  - Thirst [None]
  - Drug ineffective [None]

NARRATIVE: CASE EVENT DATE: 20200525
